FAERS Safety Report 10899132 (Version 1)
Quarter: 2015Q1

REPORT INFORMATION
  Report Type: Spontaneous
  Country: US (occurrence: US)
  Receive Date: 20150309
  Receipt Date: 20150309
  Transmission Date: 20150721
  Serious: Yes (Other)
  Sender: FDA-Public Use
  Company Number: US-ASTRAZENECA-2015SE20414

PATIENT
  Age: 56 Year
  Sex: Male
  Weight: 117.9 kg

DRUGS (1)
  1. CRESTOR [Suspect]
     Active Substance: ROSUVASTATIN CALCIUM
     Route: 048
     Dates: start: 1995

REACTIONS (3)
  - Abdominal pain lower [Unknown]
  - Hernia [Unknown]
  - Testicular pain [Unknown]

NARRATIVE: CASE EVENT DATE: 2014
